FAERS Safety Report 6221577-X (Version None)
Quarter: 2009Q2

REPORT INFORMATION
  Report Type: 
  Country: None (occurrence: None)
  Receive Date: 20090610
  Receipt Date: 20090121
  Transmission Date: 20091009
  Serious: Yes (Other)
  Sender: FDA-Public Use
  Company Number: JP-JNJFOC-20081203557

PATIENT
  Sex: Male

DRUGS (5)
  1. TOPINA [Suspect]
     Route: 048
  2. TOPINA [Suspect]
     Indication: EPILEPSY
     Route: 048
  3. DEPAKENE [Concomitant]
     Route: 048
  4. TEGRETOL [Concomitant]
     Route: 048
  5. DIAMOX [Concomitant]
     Route: 048

REACTIONS (1)
  - MEMORY IMPAIRMENT [None]
